FAERS Safety Report 25100703 (Version 3)
Quarter: 2025Q2

REPORT INFORMATION
  Report Type: Spontaneous
  Country: US (occurrence: US)
  Receive Date: 20250320
  Receipt Date: 20250618
  Transmission Date: 20250717
  Serious: Yes (Other)
  Sender: BRISTOL-MYERS SQUIBB COMPANY
  Company Number: US-BRISTOL-MYERS SQUIBB COMPANY-2025-037167

PATIENT
  Age: 86 Year
  Sex: Female

DRUGS (8)
  1. NIVOLUMAB [Suspect]
     Active Substance: NIVOLUMAB
     Indication: Invasive ductal breast carcinoma
  2. NIVOLUMAB [Suspect]
     Active Substance: NIVOLUMAB
     Indication: Soft tissue sarcoma
  3. IPILIMUMAB [Suspect]
     Active Substance: IPILIMUMAB
     Indication: Invasive ductal breast carcinoma
  4. IPILIMUMAB [Suspect]
     Active Substance: IPILIMUMAB
     Indication: Soft tissue sarcoma
  5. RIBOCICLIB [Concomitant]
     Active Substance: RIBOCICLIB
     Indication: Invasive ductal breast carcinoma
  6. RIBOCICLIB [Concomitant]
     Active Substance: RIBOCICLIB
     Indication: Soft tissue sarcoma
  7. ANASTROZOLE [Concomitant]
     Active Substance: ANASTROZOLE
     Indication: Invasive ductal breast carcinoma
  8. ANASTROZOLE [Concomitant]
     Active Substance: ANASTROZOLE
     Indication: Soft tissue sarcoma

REACTIONS (2)
  - Pemphigoid [Recovering/Resolving]
  - Off label use [Unknown]
